FAERS Safety Report 11712158 (Version 1)
Quarter: 2015Q4

REPORT INFORMATION
  Report Type: Spontaneous
  Country: US (occurrence: US)
  Receive Date: 20151104
  Receipt Date: 20151104
  Transmission Date: 20160304
  Serious: No
  Sender: FDA-Public Use
  Company Number: US-ELI_LILLY_AND_COMPANY-US201107001229

PATIENT
  Age: 78 Year
  Sex: Female

DRUGS (2)
  1. FORTEO [Suspect]
     Active Substance: TERIPARATIDE
     Indication: OSTEOPOROSIS
     Dosage: 20 UG, QD
     Dates: start: 20110616
  2. FORTEO [Suspect]
     Active Substance: TERIPARATIDE
     Dosage: 20 UG, QD
     Dates: start: 20110627

REACTIONS (6)
  - Feeling abnormal [Unknown]
  - Dizziness [Recovered/Resolved]
  - Intentional product misuse [Unknown]
  - Balance disorder [Unknown]
  - Vertigo [Unknown]
  - Syncope [Unknown]

NARRATIVE: CASE EVENT DATE: 201106
